FAERS Safety Report 9805040 (Version 1)
Quarter: 2014Q1

REPORT INFORMATION
  Report Type: Spontaneous
  Country: US (occurrence: US)
  Receive Date: 20140109
  Receipt Date: 20140109
  Transmission Date: 20141002
  Serious: No
  Sender: FDA-Public Use
  Company Number: US-009507513-1401USA002875

PATIENT
  Sex: Female

DRUGS (2)
  1. SINGULAIR [Suspect]
  2. THYROID [Suspect]

REACTIONS (1)
  - Asthma [Unknown]
